FAERS Safety Report 18395786 (Version 1)
Quarter: 2020Q4

REPORT INFORMATION
  Report Type: Spontaneous
  Country: US (occurrence: US)
  Receive Date: 20201018
  Receipt Date: 20201018
  Transmission Date: 20210114
  Serious: Yes (Other)
  Sender: FDA-Public Use
  Company Number: US-GYP-000213

PATIENT
  Age: 46 Year

DRUGS (3)
  1. PREDNISONE. [Suspect]
     Active Substance: PREDNISONE
     Indication: LINEAR IGA DISEASE
     Route: 065
  2. DAPSONE. [Suspect]
     Active Substance: DAPSONE
     Indication: LINEAR IGA DISEASE
     Dosage: DAILY
     Route: 065
  3. MYCOPHENOLATE MOFETIL. [Suspect]
     Active Substance: MYCOPHENOLATE MOFETIL
     Indication: LINEAR IGA DISEASE
     Route: 065

REACTIONS (3)
  - Drug ineffective [Unknown]
  - Linear IgA disease [Unknown]
  - Condition aggravated [Unknown]
